FAERS Safety Report 11988734 (Version 2)
Quarter: 2016Q1

REPORT INFORMATION
  Report Type: Report from Study
  Country: US (occurrence: US)
  Receive Date: 20160202
  Receipt Date: 20160203
  Transmission Date: 20160526
  Serious: Yes (Other)
  Sender: FDA-Public Use
  Company Number: US-PFIZER INC-2016051507

PATIENT

DRUGS (3)
  1. CLOMIPRAMINE [Interacting]
     Active Substance: CLOMIPRAMINE
     Dosage: UNK
  2. METHYLPHENIDATE HYDROCHLORIDE. [Suspect]
     Active Substance: METHYLPHENIDATE HYDROCHLORIDE
     Dosage: UNK
  3. SELEGILINE [Interacting]
     Active Substance: SELEGILINE
     Dosage: UNK
     Route: 062

REACTIONS (4)
  - Syncope [Not Recovered/Not Resolved]
  - Altered state of consciousness [Not Recovered/Not Resolved]
  - Dizziness [Not Recovered/Not Resolved]
  - Drug interaction [Not Recovered/Not Resolved]
